FAERS Safety Report 6976474 (Version 3)
Quarter: 2018Q3

REPORT INFORMATION
  Report Type: Spontaneous
  Country: IT (occurrence: IT)
  Receive Date: 20090423
  Receipt Date: 20180823
  Transmission Date: 20181010
  Serious: Yes (Death, Hospitalization, Other)
  Sender: FDA-Public Use
  Company Number: IT-PFIZER INC-2009197747

PATIENT
  Age: 73 Year
  Sex: Female

DRUGS (1)
  1. SUNITINIB MALATE. [Suspect]
     Active Substance: SUNITINIB MALATE
     Dosage: 37.5 MG, CYCLIC (37.5 MG, 1X/DAY, 4 WEEKS ON/ 2 WEEKS OFF)
     Route: 048
     Dates: start: 20081204, end: 20090328

REACTIONS (3)
  - Acute kidney injury [Fatal]
  - Cardiac failure acute [Fatal]
  - Rhabdomyolysis [Fatal]

NARRATIVE: CASE EVENT DATE: 20090331
